FAERS Safety Report 24414122 (Version 1)
Quarter: 2024Q4

REPORT INFORMATION
  Report Type: Report from Study
  Country: IL (occurrence: IL)
  Receive Date: 20241008
  Receipt Date: 20241008
  Transmission Date: 20250114
  Serious: Yes (Death, Hospitalization)
  Sender: ABBVIE
  Company Number: IL-ABBVIE-5953011

PATIENT
  Age: 73 Year
  Sex: Male

DRUGS (3)
  1. CARBIDOPA\LEVODOPA [Suspect]
     Active Substance: CARBIDOPA\LEVODOPA
     Indication: Parkinson^s disease
     Dosage: MORNING DOSE 3.1ML, CONTINUOUS DOSE 3.7 ML/HOUR, EXTRA DOSE 1.5 ML
     Route: 050
     Dates: start: 20170914
  2. CARBIDOPA\LEVODOPA [Suspect]
     Active Substance: CARBIDOPA\LEVODOPA
     Dosage: MORNING DOSE 3.1ML, CONTINUOUS DOSE 3.7 ML/HOUR, EXTRA DOSE 1.5 ML
     Route: 050
  3. COUMADIN [Concomitant]
     Active Substance: WARFARIN SODIUM
     Indication: Heart valve replacement
     Dates: start: 2005

REACTIONS (3)
  - Cerebral haemorrhage [Fatal]
  - Fall [Unknown]
  - Contusion [Unknown]

NARRATIVE: CASE EVENT DATE: 20240927
